FAERS Safety Report 5043179-3 (Version None)
Quarter: 2006Q3

REPORT INFORMATION
  Report Type: 
  Country: None (occurrence: None)
  Receive Date: 20060703
  Receipt Date: 20060703
  Transmission Date: 20061208
  Serious: Yes (Hospitalization)
  Sender: FDA-Public Use
  Company Number: None

PATIENT
  Age: 59 Year
  Sex: Male
  Weight: 98.4306 kg

DRUGS (17)
  1. SIMVASTATIN [Suspect]
     Indication: HYPERCHOLESTEROLAEMIA
     Dosage: 40 MG DAILY
  2. GEMFIBROZIL [Suspect]
     Indication: HYPERCHOLESTEROLAEMIA
     Dosage: 600 MG BID
  3. LITHIUM CARBONATE [Concomitant]
  4. PROPRANOLOL [Concomitant]
  5. BUPROPION HCL [Concomitant]
  6. SIMVASTATIN [Concomitant]
  7. LEVOTHYROXINE SODIUM [Concomitant]
  8. BUSPAR [Concomitant]
  9. RISPERIDONE [Concomitant]
  10. GABAPENTIN [Concomitant]
  11. GEMFIBROZIL [Concomitant]
  12. RANITIDINE [Concomitant]
  13. GABAPENTIN [Concomitant]
  14. GEMFRIBROZIL [Concomitant]
  15. RANITIDONE [Concomitant]
  16. BENZOTROPINE [Concomitant]
  17. IBUPROFEN [Concomitant]

REACTIONS (7)
  - ABNORMAL BEHAVIOUR [None]
  - ACCIDENTAL OVERDOSE [None]
  - ASPARTATE AMINOTRANSFERASE INCREASED [None]
  - BLOOD CREATINE PHOSPHOKINASE INCREASED [None]
  - CONFUSIONAL STATE [None]
  - MOOD ALTERED [None]
  - PERSONALITY CHANGE [None]
